FAERS Safety Report 8623363-X (Version None)
Quarter: 2012Q3

REPORT INFORMATION
  Report Type: 
  Country: None (occurrence: None)
  Receive Date: 20120827
  Receipt Date: 20120815
  Transmission Date: 20120928
  Serious: Yes (Other)
  Sender: FDA-Public Use
  Company Number: CN-ASTRAZENECA-2012SE57512

PATIENT
  Age: 10 Year
  Sex: Male

DRUGS (3)
  1. PULMICORT [Suspect]
     Route: 055
     Dates: start: 20090101
  2. BRONCHODILATORS [Concomitant]
     Dates: start: 20111101, end: 20120101
  3. PULMICORT [Suspect]
     Indication: ASTHMA
     Dosage: 1 SPRAY DAILY
     Route: 055
     Dates: start: 20070101

REACTIONS (6)
  - BRONCHITIS [None]
  - VARICELLA [None]
  - BRONCHIAL SECRETION RETENTION [None]
  - ASTHMA [None]
  - TRACHEITIS [None]
  - DRUG DOSE OMISSION [None]
